FAERS Safety Report 18074277 (Version 2)
Quarter: 2020Q3

REPORT INFORMATION
  Report Type: Spontaneous
  Country: NL (occurrence: NL)
  Receive Date: 20200727
  Receipt Date: 20200729
  Transmission Date: 20201103
  Serious: Yes (Other)
  Sender: FDA-Public Use
  Company Number: NL-JNJFOC-20200722515

PATIENT
  Sex: Male
  Weight: 68 kg

DRUGS (1)
  1. CONCERTA [Suspect]
     Active Substance: METHYLPHENIDATE HYDROCHLORIDE
     Indication: ATTENTION DEFICIT HYPERACTIVITY DISORDER
     Dosage: 1X PER DAY 1ST
     Route: 065
     Dates: start: 2002

REACTIONS (7)
  - Tremor [Recovering/Resolving]
  - Insomnia [Recovering/Resolving]
  - Mydriasis [Not Recovered/Not Resolved]
  - Muscle spasms [Not Recovered/Not Resolved]
  - Dyskinesia [Recovering/Resolving]
  - Suicidal ideation [Recovering/Resolving]
  - Libido disorder [Not Recovered/Not Resolved]
